FAERS Safety Report 5505127-9 (Version None)
Quarter: 2007Q4

REPORT INFORMATION
  Report Type: 
  Country: None (occurrence: None)
  Receive Date: 20071031
  Receipt Date: 20071024
  Transmission Date: 20080405
  Serious: Yes (Other)
  Sender: FDA-Public Use
  Company Number: 2007RL000479

PATIENT
  Age: 89 Year
  Sex: Female
  Weight: 58.9676 kg

DRUGS (5)
  1. INNOPRAN XL [Suspect]
     Indication: PARALYSIS
     Dosage: 80 MG;QD; 80 MG;QID;
     Dates: start: 20050101, end: 20070810
  2. INNOPRAN XL [Suspect]
     Indication: PARALYSIS
     Dosage: 80 MG;QD; 80 MG;QID;
     Dates: start: 20070810, end: 20070908
  3. INNOPRAN XL [Suspect]
     Indication: PARALYSIS
     Dosage: 80 MG;QD; 80 MG;QID;
     Dates: start: 20070908
  4. DIOVAN/01319601/ [Concomitant]
  5. ATIVAN [Concomitant]

REACTIONS (9)
  - ACTIVITIES OF DAILY LIVING IMPAIRED [None]
  - BRONCHOSPASM [None]
  - CATATONIA [None]
  - DECREASED APPETITE [None]
  - FEELING ABNORMAL [None]
  - MEDICATION ERROR [None]
  - MENTAL IMPAIRMENT [None]
  - OFF LABEL USE [None]
  - OVERDOSE [None]
